FAERS Safety Report 15242730 (Version 1)
Quarter: 2018Q3

REPORT INFORMATION
  Report Type: Spontaneous
  Country: US (occurrence: US)
  Receive Date: 20180712
  Receipt Date: 20180712
  Transmission Date: 20181010
  Serious: No
  Sender: FDA-Public Use
  Company Number: None

PATIENT
  Age: 87 Year
  Sex: Female

DRUGS (1)
  1. TOBRAMYCIN 300ML/5ML PFIZER [Suspect]
     Active Substance: TOBRAMYCIN
     Indication: BRONCHIECTASIS
     Dosage: ?          OTHER DOSE:300/5 MG/ML;OTHER FREQUENCY:1 VIAL PER DAY FOR;OTHER ROUTE:NEBULIZER?
     Dates: start: 20160806, end: 20180705

REACTIONS (2)
  - Therapy non-responder [None]
  - Candida infection [None]

NARRATIVE: CASE EVENT DATE: 20180705
